FAERS Safety Report 8854938 (Version 2)
Quarter: 2013Q3

REPORT INFORMATION
  Report Type: Spontaneous
  Country: US (occurrence: US)
  Receive Date: 20121023
  Receipt Date: 20130702
  Transmission Date: 20140515
  Serious: Yes (Life-Threatening, Other)
  Sender: FDA-Public Use
  Company Number: US-009507513-1210USA006866

PATIENT
  Age: 52 Year
  Sex: Male
  Weight: 120 kg

DRUGS (3)
  1. SAPHRIS [Suspect]
     Indication: BIPOLAR DISORDER
     Dosage: 100 MG, HS
     Route: 048
     Dates: start: 20120817, end: 20120817
  2. SAPHRIS [Suspect]
     Indication: DEPRESSION
  3. SAPHRIS [Suspect]
     Indication: ANXIETY

REACTIONS (14)
  - Hypoaesthesia [Unknown]
  - Hypoaesthesia [Unknown]
  - Eye swelling [Unknown]
  - Ocular hyperaemia [Unknown]
  - Head injury [Unknown]
  - Hypoaesthesia [Unknown]
  - Rash [Unknown]
  - Headache [Unknown]
  - Gait disturbance [Unknown]
  - Hypoaesthesia oral [Unknown]
  - Loss of consciousness [Unknown]
  - Dizziness [Unknown]
  - Dizziness [Unknown]
  - Asthenia [Unknown]
